FAERS Safety Report 4964907-9 (Version None)
Quarter: 2006Q2

REPORT INFORMATION
  Report Type: 
  Country: None (occurrence: None)
  Receive Date: 20060406
  Receipt Date: 20060329
  Transmission Date: 20061013
  Serious: Yes (Hospitalization)
  Sender: FDA-Public Use
  Company Number: BR-JNJFOC-20060400181

PATIENT
  Age: 2 Year
  Sex: Male

DRUGS (2)
  1. BABY TYLENOL [Suspect]
     Route: 048
  2. BABY TYLENOL [Suspect]
     Indication: DRUG USE FOR UNKNOWN INDICATION
     Dosage: GIVEN AN ORAL DOSE 4 TIMES HIGHER THAN PRESCRIBED
     Route: 048

REACTIONS (2)
  - DRUG ADMINISTRATION ERROR [None]
  - SOMNOLENCE [None]
